FAERS Safety Report 7754524-X (Version None)
Quarter: 2011Q3

REPORT INFORMATION
  Report Type: 
  Country: None (occurrence: None)
  Receive Date: 20110915
  Receipt Date: 20110117
  Transmission Date: 20111222
  Serious: No
  Sender: FDA-Public Use
  Company Number: US-BAYER-2011-005621

PATIENT
  Age: 51 Year
  Sex: Male
  Weight: 70.295 kg

DRUGS (1)
  1. ULTRAVIST 150 [Suspect]
     Indication: COMPUTERISED TOMOGRAM
     Dosage: 125 ML, ONCE, 1.8ML/SEC
     Route: 042
     Dates: start: 20110114, end: 20110114

REACTIONS (4)
  - NASAL CONGESTION [None]
  - SNEEZING [None]
  - LACRIMATION INCREASED [None]
  - EYELID OEDEMA [None]
